FAERS Safety Report 14712722 (Version 2)
Quarter: 2018Q2

REPORT INFORMATION
  Report Type: Spontaneous
  Country: JP (occurrence: JP)
  Receive Date: 20180404
  Receipt Date: 20180604
  Transmission Date: 20180711
  Serious: Yes (Other)
  Sender: FDA-Public Use
  Company Number: JP-ALK-ABELLO A/S-2018AA000561

PATIENT

DRUGS (3)
  1. MITICURE MITE SUBLINGUAL TABLET [Suspect]
     Active Substance: DERMATOPHAGOIDES FARINAE\DERMATOPHAGOIDES PTERONYSSINUS
     Indication: RHINITIS PERENNIAL
     Dosage: 3300 JAU ONCE DAILY
     Route: 060
     Dates: start: 20180209, end: 20180215
  2. MITICURE MITE SUBLINGUAL TABLET [Suspect]
     Active Substance: DERMATOPHAGOIDES FARINAE\DERMATOPHAGOIDES PTERONYSSINUS
     Dosage: 10000 JAU
     Route: 060
     Dates: start: 20180216, end: 20180216
  3. PREDNISOLONE. [Concomitant]
     Active Substance: PREDNISOLONE
     Indication: CHRONIC EOSINOPHILIC RHINOSINUSITIS
     Dosage: 10 MILLIGRAM, QD
     Route: 048
     Dates: start: 20180207, end: 20180223

REACTIONS (3)
  - Epistaxis [Recovered/Resolved]
  - Tonsillitis bacterial [Recovered/Resolved]
  - Epistaxis [Recovered/Resolved]

NARRATIVE: CASE EVENT DATE: 20180214
